FAERS Safety Report 7420982-3 (Version None)
Quarter: 2011Q2

REPORT INFORMATION
  Report Type: 
  Country: None (occurrence: None)
  Receive Date: 20110418
  Receipt Date: 20110414
  Transmission Date: 20111010
  Serious: Yes (Disabling)
  Sender: FDA-Public Use
  Company Number: DE-ABBOTT-11P-062-0709270-00

PATIENT
  Age: 35 Year
  Sex: Male

DRUGS (11)
  1. PREGABALIN [Suspect]
     Route: 048
  2. OXCARBAZEPINE [Suspect]
     Indication: EPILEPSY
  3. PRIMIDONE [Concomitant]
     Indication: PRODUCT USED FOR UNKNOWN INDICATION
  4. ERGENYL CHRONO TABLETS [Suspect]
     Indication: EPILEPSY
     Dosage: UNKNOWN: TABLET, EXTENDED RELEASE
     Route: 048
     Dates: start: 20010101
  5. LAMOTRIGINE [Suspect]
     Indication: EPILEPSY
  6. PREGABALIN [Suspect]
     Indication: EPILEPSY
     Route: 048
     Dates: start: 20070301, end: 20100101
  7. PREGABALIN [Suspect]
     Route: 048
     Dates: start: 20100101
  8. KEPPRA [Suspect]
     Indication: EPILEPSY
     Route: 048
     Dates: start: 20090101
  9. CARBAMAZEPINE [Suspect]
     Indication: EPILEPSY
  10. PHENOBARBITAL SRT [Concomitant]
     Indication: PRODUCT USED FOR UNKNOWN INDICATION
  11. TOPIRAMATE [Concomitant]
     Indication: PRODUCT USED FOR UNKNOWN INDICATION

REACTIONS (3)
  - OPTIC ATROPHY [None]
  - VISUAL FIELD DEFECT [None]
  - VISUAL ACUITY REDUCED [None]
